FAERS Safety Report 6868636-6 (Version None)
Quarter: 2010Q3

REPORT INFORMATION
  Report Type: 
  Country: None (occurrence: None)
  Receive Date: 20100722
  Receipt Date: 20080723
  Transmission Date: 20110219
  Serious: No
  Sender: FDA-Public Use
  Company Number: US-PFIZER INC-2008048536

PATIENT
  Sex: Female

DRUGS (4)
  1. CHANTIX [Suspect]
     Indication: SMOKING CESSATION THERAPY
     Dates: start: 20070706
  2. LIPITOR [Concomitant]
     Indication: BLOOD CHOLESTEROL INCREASED
  3. ATENOLOL [Concomitant]
     Indication: HYPERTENSION
  4. LORAZEPAM [Concomitant]
     Indication: SLEEP DISORDER

REACTIONS (6)
  - DECREASED INTEREST [None]
  - DEPRESSED MOOD [None]
  - DYSGEUSIA [None]
  - HEAD DISCOMFORT [None]
  - SOMNOLENCE [None]
  - WEIGHT INCREASED [None]
